FAERS Safety Report 4458331-5 (Version None)
Quarter: 2004Q3

REPORT INFORMATION
  Report Type: 
  Country: None (occurrence: None)
  Receive Date: 20040924
  Receipt Date: 20040817
  Transmission Date: 20050211
  Serious: Yes (Hospitalization, Other)
  Sender: FDA-Public Use
  Company Number: PHNU2004DE02951

PATIENT
  Age: 41 Year
  Sex: Female

DRUGS (38)
  1. CALCITONIN SALMON [Suspect]
     Indication: PHANTOM PAIN
     Dosage: 100 IU, QD
     Route: 042
     Dates: start: 20010118, end: 20010119
  2. CALCITONIN SALMON [Suspect]
     Dosage: 200IU/DAY
     Dates: start: 20010427, end: 20010427
  3. CALCITONIN SALMON [Suspect]
     Dosage: 100IU/DAY
     Dates: start: 20010430, end: 20010430
  4. CALCITONIN SALMON [Suspect]
     Dosage: 100IU/DAY
     Dates: start: 20010507, end: 20010511
  5. CALCITONIN SALMON [Suspect]
     Dosage: 100IU/DAY
     Dates: start: 20011008, end: 20011001
  6. CALCITONIN SALMON [Suspect]
     Dates: start: 20011012, end: 20011013
  7. CALCITONIN SALMON [Suspect]
     Dates: start: 20020213, end: 20020213
  8. CALCITONIN SALMON [Suspect]
     Dosage: 100IU/DAY
     Dates: start: 20020306, end: 20020307
  9. CALCITONIN SALMON [Suspect]
     Dosage: SIX TIMES
     Dates: start: 20020308, end: 20020315
  10. CALCITONIN SALMON [Suspect]
     Dosage: 100IU/DAY
     Dates: start: 20030315, end: 20030315
  11. CALCITONIN SALMON [Suspect]
     Dates: start: 20040805, end: 20040806
  12. CALCITONIN SALMON [Suspect]
     Dates: start: 20040809, end: 20040813
  13. CALCITONIN SALMON [Suspect]
     Dates: start: 20040816, end: 20040817
  14. CALCITONIN SALMON [Suspect]
     Dosage: 100IU/DAY
     Dates: start: 20010502, end: 20010504
  15. CALCITONIN SALMON [Suspect]
     Dosage: 200IU/DAY
     Route: 045
     Dates: start: 20040814, end: 20040815
  16. CALCITONIN SALMON [Suspect]
     Dosage: DOSAGE REDUCED TO 100IU/DAY
     Route: 045
     Dates: start: 20040801
  17. METOCLOPRAMIDE HYDROCHLORIDE [Concomitant]
     Indication: NAUSEA
     Dosage: UNK, UNK
     Dates: start: 20040814, end: 20040815
  18. ANTIEMETICS [Concomitant]
  19. CORTISONE [Concomitant]
     Dates: start: 20020206
  20. IMUREK [Concomitant]
  21. KATADOLON [Concomitant]
     Dosage: 600MG/DAY
  22. LAXOBERAL ^BOEHRINGER INGELHEIM^ [Concomitant]
  23. METHOTREXATE [Concomitant]
  24. MOVICOL [Concomitant]
     Dosage: 13250MG/DAY
  25. MORPHINE SULFATE [Concomitant]
     Dosage: UP TO 2 TIMES/DAY
  26. MORPHINE SULFATE [Concomitant]
     Dosage: UP TO 4 TIMES/DAY
  27. MORPHINE SULFATE [Concomitant]
     Dosage: UP TO 600MG/DAY
  28. MORPHINE SULFATE [Concomitant]
     Dosage: ONCE/DAY
  29. MORPHINE SULFATE [Concomitant]
     Dosage: UP TO 3 TIMES/DAY
  30. NEURONTIN [Concomitant]
     Dosage: MAX 900MG/DAY
  31. PALLADON [Concomitant]
     Dosage: 72MG/DAY
  32. PSYQUIL ^SANOFI^ [Concomitant]
  33. SAROTEN ^BAYER VITAL^ [Concomitant]
     Dosage: 75 MG, QD
  34. TRAMADOL HCL [Concomitant]
     Dosage: 100 MG, TID
  35. TRAMAL [Concomitant]
     Dosage: 120-160DRP/DAY
     Dates: start: 19980101
  36. VALORON [Concomitant]
  37. ANTIDEPRESSANTS [Suspect]
  38. BENZODIAZEPINES [Suspect]

REACTIONS (46)
  - AGGRESSION [None]
  - ANGINA PECTORIS [None]
  - ANOREXIA [None]
  - ARTHRALGIA [None]
  - ASTHENIA [None]
  - BLOOD TEST ABNORMAL [None]
  - CONDITION AGGRAVATED [None]
  - DEPRESSION [None]
  - DIARRHOEA [None]
  - DIFFICULTY IN WALKING [None]
  - DIZZINESS [None]
  - DRUG DEPENDENCE [None]
  - DRUG HYPERSENSITIVITY [None]
  - ERYTHEMA [None]
  - FATIGUE [None]
  - FEELING ABNORMAL [None]
  - FINGER AMPUTATION [None]
  - GASTROINTESTINAL INFECTION [None]
  - ILLUSION [None]
  - IMPAIRED HEALING [None]
  - INFLAMMATION [None]
  - INSOMNIA [None]
  - JOINT SWELLING [None]
  - MEMORY IMPAIRMENT [None]
  - MUSCLE CRAMP [None]
  - MUSCLE SPASMS [None]
  - MUSCULAR WEAKNESS [None]
  - MUSCULOSKELETAL PAIN [None]
  - MUSCULOSKELETAL STIFFNESS [None]
  - NASOPHARYNGITIS [None]
  - NAUSEA [None]
  - NECROSIS [None]
  - NEUROMA [None]
  - OEDEMA PERIPHERAL [None]
  - PAIN [None]
  - PAIN EXACERBATED [None]
  - PNEUMONIA [None]
  - PROCEDURAL COMPLICATION [None]
  - PYREXIA [None]
  - RESTLESSNESS [None]
  - SEPSIS [None]
  - SWELLING [None]
  - SWELLING FACE [None]
  - URINARY TRACT INFECTION [None]
  - VASCULITIS [None]
  - WEIGHT DECREASED [None]
